FAERS Safety Report 7650537-7 (Version None)
Quarter: 2011Q3

REPORT INFORMATION
  Report Type: 
  Country: None (occurrence: None)
  Receive Date: 20110802
  Receipt Date: 20110727
  Transmission Date: 20111222
  Serious: Yes (Death)
  Sender: FDA-Public Use
  Company Number: PK-GLAXOSMITHKLINE-Z0003062A

PATIENT
  Sex: Female
  Weight: 55 kg

DRUGS (2)
  1. LAPATINIB [Suspect]
     Indication: INFLAMMATORY CARCINOMA OF THE BREAST
     Dosage: 1000MG PER DAY
     Route: 048
     Dates: start: 20091208
  2. PLACEBO [Suspect]
     Indication: INFLAMMATORY CARCINOMA OF THE BREAST
     Route: 048
     Dates: start: 20091208

REACTIONS (3)
  - PLEURAL EFFUSION [None]
  - ORTHOPNOEA [None]
  - DYSPNOEA [None]
